FAERS Safety Report 6408465-0 (Version None)
Quarter: 2009Q4

REPORT INFORMATION
  Report Type: 
  Country: None (occurrence: None)
  Receive Date: 20091016
  Receipt Date: 20091007
  Transmission Date: 20100525
  Serious: Yes (Hospitalization)
  Sender: FDA-Public Use
  Company Number: WAES 0907USA00306

PATIENT
  Age: 73 Year
  Sex: Male

DRUGS (6)
  1. CAP VORINOSTAT [Suspect]
     Indication: MULTIPLE MYELOMA
     Dosage: 400 MG
     Route: 048
     Dates: start: 20090526, end: 20090614
  2. BORTEZOMIB [Suspect]
     Indication: MULTIPLE MYELOMA
     Dosage: 2.11 MG
     Route: 042
     Dates: start: 20090526, end: 20090605
  3. AUGENTIN [Concomitant]
  4. ESOMEZOL [Concomitant]
  5. OXYCONTIN [Concomitant]
  6. PROAMIN [Concomitant]

REACTIONS (4)
  - ASTHENIA [None]
  - CHRONIC OBSTRUCTIVE PULMONARY DISEASE [None]
  - RENAL FAILURE [None]
  - SYNCOPE [None]
